FAERS Safety Report 5869843-1 (Version None)
Quarter: 2008Q3

REPORT INFORMATION
  Report Type: 
  Country: None (occurrence: None)
  Receive Date: 20080902
  Receipt Date: 20080820
  Transmission Date: 20090109
  Serious: Yes (Other)
  Sender: FDA-Public Use
  Company Number: CHPA2008US13960

PATIENT
  Age: 74 Year
  Sex: Female

DRUGS (5)
  1. MAALOX ANTIACID/ANTYGAS MAX STR MULTI SYMPTOM (NCH)(CALCIUM CARBONATE, [Suspect]
     Indication: DYSPEPSIA
     Dosage: 10 TO 12 DF, QD, ORAL
     Route: 048
     Dates: start: 19960101
  2. MAALOX ANTIACID/ANTYGAS MAX STR MULTI SYMPTOM (NCH)(CALCIUM CARBONATE, [Suspect]
     Indication: MINERAL SUPPLEMENTATION
     Dosage: 10 TO 12 DF, QD, ORAL
     Route: 048
     Dates: start: 19960101
  3. CARDIZEM [Concomitant]
  4. ZOCOR [Concomitant]
  5. NEXIUM [Concomitant]

REACTIONS (4)
  - HIATUS HERNIA [None]
  - INTENTIONAL DRUG MISUSE [None]
  - OVERDOSE [None]
  - STOMACH DISCOMFORT [None]
